FAERS Safety Report 4837507-9 (Version None)
Quarter: 2005Q4

REPORT INFORMATION
  Report Type: 
  Country: None (occurrence: None)
  Receive Date: 20051128
  Receipt Date: 20051122
  Transmission Date: 20060501
  Serious: Yes (Other)
  Sender: FDA-Public Use
  Company Number: GB-GLAXOSMITHKLINE-B0401308A

PATIENT
  Sex: Male

DRUGS (2)
  1. MALARONE [Suspect]
     Indication: MALARIA PROPHYLAXIS
     Route: 048
  2. WARFARIN SODIUM [Concomitant]

REACTIONS (2)
  - EYE HAEMORRHAGE [None]
  - INTERNATIONAL NORMALISED RATIO INCREASED [None]
